FAERS Safety Report 7130366-3 (Version None)
Quarter: 2010Q4

REPORT INFORMATION
  Report Type: 
  Country: None (occurrence: None)
  Receive Date: 20101101
  Receipt Date: 20100920
  Transmission Date: 20110411
  Serious: Yes (Other)
  Sender: FDA-Public Use
  Company Number: AMAG201000360

PATIENT
  Age: 60 Year
  Sex: Female
  Weight: 90.7 kg

DRUGS (10)
  1. FERAHEME [Suspect]
     Indication: IRON DEFICIENCY ANAEMIA
     Dosage: INTRAVENOUS
     Route: 042
     Dates: start: 20100916, end: 20100916
  2. GLIMEPIRIDE (GLIMEPIRIDE) TABLET [Concomitant]
  3. ACTOS [Concomitant]
  4. LANTUS [Concomitant]
  5. PREVACID (LANSOPRAZOLE) TABLET [Concomitant]
  6. ALLEGRA (FEXOFENADINE HYDROCHLORIDE) TABLET [Concomitant]
  7. DIOVAN [Concomitant]
  8. METOPROLOL TARTRATE [Concomitant]
  9. MAXZIDE (HYDROCHLOROTHIAZIDE, TRIAMTERENE) TABLET [Concomitant]
  10. VYTORIN (EZETIMIBE, SIMVASTATIN) TABLET [Concomitant]

REACTIONS (10)
  - DEPRESSED LEVEL OF CONSCIOUSNESS [None]
  - DYSPNOEA [None]
  - FEELING ABNORMAL [None]
  - GENERALISED ERYTHEMA [None]
  - HYPERHIDROSIS [None]
  - HYPOTENSION [None]
  - LETHARGY [None]
  - PRESYNCOPE [None]
  - RETCHING [None]
  - SOMNOLENCE [None]
